FAERS Safety Report 8702515 (Version 4)
Quarter: 2013Q1

REPORT INFORMATION
  Report Type: Spontaneous
  Country: US (occurrence: US)
  Receive Date: 20120803
  Receipt Date: 20130107
  Transmission Date: 20140127
  Serious: No
  Sender: FDA-Public Use
  Company Number: US-PFIZER INC-2012186477

PATIENT
  Age: 62 Year
  Sex: Female

DRUGS (6)
  1. CELEBREX [Suspect]
     Indication: INFLAMMATION
     Dosage: 200 MG, 1X/DAY
     Route: 048
     Dates: start: 20110215
  2. BISOPROLOL FUMARATE/HYDROCHLOROTHIAZIDE [Concomitant]
     Indication: BLOOD PRESSURE ABNORMAL
     Dosage: 5-6.25 MG, DAILY
     Dates: start: 20110817
  3. TRAMADOL HYDROCHLORIDE [Concomitant]
     Indication: PAIN
     Dosage: 50 MG, EVERY 6 HOURS AS NEEDED
     Dates: start: 20110303
  4. VITAMIN B12 [Concomitant]
     Indication: VITAMIN B12 DEFICIENCY
     Dosage: 2500 UG, 1X/DAY
     Route: 060
     Dates: start: 20120317
  5. VITAMIN D3 [Concomitant]
     Indication: VITAMIN D DEFICIENCY
     Dosage: 1000 UNITS, DAILY
     Dates: start: 20120317
  6. VYTORIN [Concomitant]
     Indication: BLOOD CHOLESTEROL ABNORMAL
     Dosage: 10-80 MG, AT BEDTIME
     Dates: start: 20110215

REACTIONS (4)
  - Tooth fracture [Unknown]
  - Endodontic procedure [Unknown]
  - Local swelling [Unknown]
  - Gait disturbance [Unknown]
